FAERS Safety Report 5101361-0 (Version None)
Quarter: 2006Q3

REPORT INFORMATION
  Report Type: 
  Country: None (occurrence: None)
  Receive Date: 20060911
  Receipt Date: 20060807
  Transmission Date: 20061208
  Serious: Yes (Other)
  Sender: FDA-Public Use
  Company Number: 200613228BCC

PATIENT
  Age: 84 Year
  Sex: Male
  Weight: 84.5 kg

DRUGS (8)
  1. ASPIRIN [Suspect]
     Dosage: 325MG PER DAY
     Route: 048
     Dates: start: 20060201, end: 20060731
  2. ECOTRIN [Suspect]
     Route: 048
     Dates: start: 20041201, end: 20060201
  3. PLAVIX [Concomitant]
  4. SYNTHROID [Concomitant]
  5. LOPRESSOR [Concomitant]
  6. PROTONIX [Concomitant]
  7. ZETIA [Concomitant]
  8. ASPIRIN [Concomitant]

REACTIONS (2)
  - ABDOMINAL PAIN UPPER [None]
  - COLITIS ULCERATIVE [None]
